FAERS Safety Report 6550101-7 (Version None)
Quarter: 2010Q1

REPORT INFORMATION
  Report Type: 
  Country: None (occurrence: None)
  Receive Date: 20100125
  Receipt Date: 20100114
  Transmission Date: 20100710
  Serious: Yes (Other)
  Sender: FDA-Public Use
  Company Number: ES-PFIZER INC-2010005726

PATIENT
  Age: 42 Year
  Sex: Male

DRUGS (6)
  1. ZYVOXID [Suspect]
     Dosage: 1.2 G, DAILY
     Route: 042
     Dates: start: 20090723, end: 20090803
  2. NOLOTIL /SPA/ [Suspect]
     Indication: ANALGESIC THERAPY
     Dosage: 2 G, 3X/DAY
     Route: 042
     Dates: start: 20090723, end: 20090808
  3. MEROPENEM TRIHYDRATE [Suspect]
     Dosage: 1 G, 3X/DAY
     Route: 042
     Dates: start: 20090723, end: 20090808
  4. FENYTOIN [Concomitant]
     Indication: PROPHYLAXIS
     Dosage: UNK
     Route: 042
     Dates: start: 20090723
  5. CEFAZOLIN [Concomitant]
     Dosage: UNK
     Route: 042
     Dates: start: 20090723, end: 20090825
  6. DEXAMETHASONE [Concomitant]
     Indication: GLIOBLASTOMA MULTIFORME
     Dosage: UNK
     Dates: start: 20090723, end: 20090723

REACTIONS (1)
  - HEPATITIS [None]
